FAERS Safety Report 7483691-0 (Version None)
Quarter: 2011Q2

REPORT INFORMATION
  Report Type: 
  Country: None (occurrence: None)
  Receive Date: 20110509
  Receipt Date: 20110426
  Transmission Date: 20111010
  Serious: Yes (Death)
  Sender: FDA-Public Use
  Company Number: 1000020725

PATIENT
  Sex: Male

DRUGS (1)
  1. ROFLUMILAST (ROFLUMILAST) (TABLETS) [Suspect]
     Indication: CHRONIC OBSTRUCTIVE PULMONARY DISEASE
     Dosage: 500 MCG (500 MCG,1 IN 1 D), ORAL
     Route: 048
     Dates: start: 20110301, end: 20110301

REACTIONS (4)
  - DISEASE PROGRESSION [None]
  - RESTLESSNESS [None]
  - CHRONIC OBSTRUCTIVE PULMONARY DISEASE [None]
  - INSOMNIA [None]
